FAERS Safety Report 9624680 (Version 1)
Quarter: 2013Q4

REPORT INFORMATION
  Report Type: Spontaneous
  Country: DE (occurrence: DE)
  Receive Date: 20131015
  Receipt Date: 20131015
  Transmission Date: 20140711
  Serious: Yes (Other)
  Sender: FDA-Public Use
  Company Number: GXKR2013DE003291

PATIENT
  Sex: 0

DRUGS (1)
  1. AMITRIPTYLINE [Suspect]
     Indication: INSOMNIA
     Dosage: 5
     Route: 048

REACTIONS (5)
  - Mastitis [Recovered/Resolved]
  - Breast discharge [Recovered/Resolved]
  - Erythema [Recovered/Resolved]
  - Musculoskeletal pain [Recovered/Resolved]
  - Pyrexia [Recovered/Resolved]
